FAERS Safety Report 4979685-7 (Version None)
Quarter: 2006Q2

REPORT INFORMATION
  Report Type: 
  Country: None (occurrence: None)
  Receive Date: 20060418
  Receipt Date: 20060407
  Transmission Date: 20061013
  Serious: Yes (Hospitalization)
  Sender: FDA-Public Use
  Company Number: 200610486BYL

PATIENT
  Age: 85 Year
  Sex: Male

DRUGS (5)
  1. AVELOX [Suspect]
     Indication: PNEUMONIA
     Dosage: 400 MG, QD, ORAL
     Route: 048
     Dates: start: 20060401, end: 20060407
  2. CIPROFLOXACIN [Suspect]
     Indication: PNEUMONIA
     Dosage: 300 MG, BID, INTRAVENOUS
     Route: 042
     Dates: start: 20060316, end: 20060322
  3. CIPROFLOXACIN [Suspect]
     Indication: PNEUMONIA
     Dosage: 300 MG, BID, INTRAVENOUS
     Route: 042
     Dates: start: 20060327, end: 20060331
  4. TAXOTERE [Suspect]
     Indication: PROSTATE CANCER
     Dosage: INTRAVENOUS DRIP
     Route: 041
     Dates: start: 20060309
  5. PASIL [Concomitant]

REACTIONS (2)
  - DRUG INEFFECTIVE [None]
  - INTERSTITIAL LUNG DISEASE [None]
